FAERS Safety Report 4820590-4 (Version None)
Quarter: 2005Q4

REPORT INFORMATION
  Report Type: 
  Country: None (occurrence: None)
  Receive Date: 20051104
  Receipt Date: 20051026
  Transmission Date: 20060501
  Serious: Yes (Hospitalization)
  Sender: FDA-Public Use
  Company Number: JP-JNJFOC-20050900631

PATIENT
  Sex: Female
  Weight: 56 kg

DRUGS (13)
  1. REMICADE [Suspect]
     Route: 042
  2. REMICADE [Suspect]
     Indication: RHEUMATOID ARTHRITIS
     Route: 042
  3. RHEUMATREX [Suspect]
     Route: 048
  4. RHEUMATREX [Suspect]
     Indication: RHEUMATOID ARTHRITIS
     Route: 048
  5. PREDONINE [Concomitant]
     Indication: RHEUMATOID ARTHRITIS
     Route: 048
  6. THIOLA [Concomitant]
     Indication: PROPHYLAXIS
     Route: 048
  7. KAMAG G [Concomitant]
     Indication: CONSTIPATION
     Route: 048
  8. BAKUMONDO-TO [Concomitant]
     Indication: COUGH
     Route: 048
  9. BONALON [Concomitant]
     Indication: OSTEOPOROSIS
     Route: 048
  10. ROCALTROL [Concomitant]
     Indication: OSTEOPOROSIS
     Dosage: DAILY DOSE: ^0.25 RG^
     Route: 048
  11. ISONIAZID [Concomitant]
     Indication: ANTIBIOTIC PROPHYLAXIS
     Route: 048
  12. ADRENAL HORMONE PREPARATIONS [Concomitant]
     Indication: RHEUMATOID ARTHRITIS
     Route: 048
  13. ACINON [Concomitant]
     Route: 048

REACTIONS (1)
  - PNEUMOCYSTIS JIROVECI PNEUMONIA [None]
